FAERS Safety Report 9003336 (Version 1)
Quarter: 2013Q1

REPORT INFORMATION
  Report Type: Spontaneous
  Country: US (occurrence: US)
  Receive Date: 20130108
  Receipt Date: 20130108
  Transmission Date: 20140127
  Serious: No
  Sender: FDA-Public Use
  Company Number: US-ROXANE LABORATORIES, INC.-2012-RO-02610RO

PATIENT
  Sex: Female

DRUGS (4)
  1. AZATHIOPRINE [Suspect]
     Indication: PULMONARY FIBROSIS
     Dosage: 50 MG
     Route: 048
     Dates: start: 20121024, end: 20121223
  2. PREDNISONE [Concomitant]
     Indication: PULMONARY FIBROSIS
     Dosage: 5 MG
  3. PLAVIX [Concomitant]
  4. AZITHROMYCIN [Concomitant]

REACTIONS (1)
  - Vomiting [Recovered/Resolved]
